FAERS Safety Report 4955152-1 (Version None)
Quarter: 2006Q1

REPORT INFORMATION
  Report Type: 
  Country: None (occurrence: None)
  Receive Date: 20060328
  Receipt Date: 20060316
  Transmission Date: 20060701
  Serious: Yes (Other)
  Sender: FDA-Public Use
  Company Number: US-JNJFOC-20051001909

PATIENT
  Sex: Female
  Weight: 62.14 kg

DRUGS (15)
  1. REMICADE [Suspect]
     Route: 042
  2. REMICADE [Suspect]
     Indication: CROHN'S DISEASE
     Route: 042
  3. ZOCOR [Concomitant]
  4. AVANDIA [Concomitant]
  5. AMITRIPTYLINE [Concomitant]
  6. RANITIDINE [Concomitant]
  7. GLIPIZIDE [Concomitant]
  8. TOPROL-XL [Concomitant]
  9. LASIX [Concomitant]
  10. AMIODARONE HCL [Concomitant]
  11. PREDNISONE [Concomitant]
  12. POTASSIUM CHLORIDE [Concomitant]
  13. ALTACE [Concomitant]
  14. ASPIRIN [Concomitant]
  15. PENTASA [Concomitant]

REACTIONS (1)
  - MITRAL VALVE PROLAPSE [None]
